FAERS Safety Report 5571590-0 (Version None)
Quarter: 2007Q4

REPORT INFORMATION
  Report Type: 
  Country: None (occurrence: None)
  Receive Date: 20071221
  Receipt Date: 20071221
  Transmission Date: 20080405
  Serious: Yes (Hospitalization)
  Sender: FDA-Public Use
  Company Number: BE-WYE-G00814507

PATIENT
  Age: 54 Year
  Sex: Male

DRUGS (4)
  1. SIROLIMUS [Suspect]
     Indication: PROPHYLAXIS AGAINST TRANSPLANT REJECTION
     Route: 048
     Dates: start: 20050426, end: 20050805
  2. MEDROL [Concomitant]
  3. DACLIZUMAB [Concomitant]
  4. MYCOPHENOLATE MOFETIL [Concomitant]

REACTIONS (1)
  - KIDNEY TRANSPLANT REJECTION [None]
